FAERS Safety Report 4870689-1 (Version None)
Quarter: 2006Q1

REPORT INFORMATION
  Report Type: 
  Country: None (occurrence: None)
  Receive Date: 20060103
  Receipt Date: 20050324
  Transmission Date: 20060701
  Serious: Yes (Other)
  Sender: FDA-Public Use
  Company Number: SER/8/1869

PATIENT
  Sex: Male

DRUGS (1)
  1. PAROXETINE HCL [Suspect]
     Indication: DEPRESSION
     Route: 065
     Dates: start: 20001214, end: 20030101

REACTIONS (9)
  - AFFECTIVE DISORDER [None]
  - AGITATION [None]
  - ANXIETY [None]
  - CHEST PAIN [None]
  - COMPLETED SUICIDE [None]
  - DEPRESSED MOOD [None]
  - DRUG WITHDRAWAL SYNDROME [None]
  - IRRITABILITY [None]
  - MALAISE [None]
